FAERS Safety Report 9166971 (Version 1)
Quarter: 2013Q1

REPORT INFORMATION
  Report Type: Report from Study
  Country: DE (occurrence: DE)
  Receive Date: 20130317
  Receipt Date: 20130317
  Transmission Date: 20140127
  Serious: Yes (Hospitalization)
  Sender: FDA-Public Use
  Company Number: DE-UCBSA-080260

PATIENT
  Age: 53 Year
  Sex: Female

DRUGS (10)
  1. VIMPAT [Suspect]
     Indication: EPILEPSY
     Dosage: 50 MG/DAY
     Dates: start: 20090717, end: 2009
  2. VIMPAT [Suspect]
     Indication: EPILEPSY
     Dosage: 400MG/DAY
     Dates: start: 2009
  3. VIMPAT [Suspect]
     Indication: EPILEPSY
     Dosage: 350MG/DAY
  4. LEVETIRACETAM [Concomitant]
     Indication: EPILEPSY
     Dosage: 4000 MG/DAY
     Dates: end: 2009
  5. LEVETIRACETAM [Concomitant]
     Indication: EPILEPSY
     Dosage: 3000 MG/DAY
     Dates: start: 2009
  6. LEVETIRACETAM [Concomitant]
     Indication: EPILEPSY
     Dosage: 2500 MG/DAY
  7. LAMOTRIGINE [Concomitant]
     Indication: EPILEPSY
     Dosage: 650MG DAILY
     Dates: end: 2009
  8. LAMOTRIGINE [Concomitant]
     Indication: EPILEPSY
     Dosage: 600MG/DAY
     Dates: start: 2009
  9. LAMOTRIGINE [Concomitant]
     Indication: EPILEPSY
     Dosage: 500MG/DAY
  10. OXCARBAZEPINE [Concomitant]
     Indication: EPILEPSY
     Dosage: 450MG/DAY
     Dates: end: 2009

REACTIONS (1)
  - Epilepsy [Unknown]
